FAERS Safety Report 8764851 (Version 1)
Quarter: 2012Q4

REPORT INFORMATION
  Report Type: 
  Country: US (occurrence: US)
  Receive Date: 20120901
  Receipt Date: 20120901
  Transmission Date: 20130627
  Serious: No
  Sender: FDA-Public Use
  Company Number: US-009507513-1208USA010368

PATIENT

DRUGS (8)
  1. NASONEX [Suspect]
     Indication: HYPERSENSITIVITY
     Dosage: 2 sprays in each nostril
     Route: 045
     Dates: end: 201111
  2. SPIRIVA [Concomitant]
  3. FORADIL [Concomitant]
  4. LESCOL [Concomitant]
  5. ZOLOFT [Concomitant]
  6. PLAVIX [Concomitant]
  7. TOPIROL [Concomitant]
  8. PULMICORT [Concomitant]

REACTIONS (1)
  - Drug ineffective [Unknown]
